FAERS Safety Report 14579005 (Version 2)
Quarter: 2018Q1

REPORT INFORMATION
  Report Type: Spontaneous
  Country: NL (occurrence: NL)
  Receive Date: 20180227
  Receipt Date: 20180228
  Transmission Date: 20180509
  Serious: Yes (Hospitalization)
  Sender: FDA-Public Use
  Company Number: NL-TEVA-2018-NL-860354

PATIENT
  Age: 61 Year
  Sex: Female

DRUGS (1)
  1. RABEPRAZOLE GASTRO-RESISTANT TABLET, 20 MG (MILLIGRAM) [Suspect]
     Active Substance: RABEPRAZOLE
     Dosage: 1 TIME A DAY 1 TABLET
     Dates: start: 20171205, end: 20171222

REACTIONS (1)
  - Palpitations [Recovering/Resolving]

NARRATIVE: CASE EVENT DATE: 20171215
